FAERS Safety Report 24149514 (Version 1)
Quarter: 2024Q3

REPORT INFORMATION
  Report Type: Spontaneous
  Country: AR (occurrence: AR)
  Receive Date: 20240730
  Receipt Date: 20240730
  Transmission Date: 20241017
  Serious: Yes (Death, Hospitalization)
  Sender: BEIGENE
  Company Number: AR-BEIGENE-BGN-2024-010053

PATIENT

DRUGS (1)
  1. BRUKINSA [Suspect]
     Active Substance: ZANUBRUTINIB
     Indication: Mantle cell lymphoma
     Dosage: 240 MILLIGRAM
     Route: 048

REACTIONS (3)
  - Gastrointestinal haemorrhage [Fatal]
  - Cardiac failure [Fatal]
  - Renal failure [Unknown]
